FAERS Safety Report 10488390 (Version 1)
Quarter: 2014Q4

REPORT INFORMATION
  Report Type: Spontaneous
  Country: US (occurrence: None)
  Receive Date: 20141001
  Receipt Date: 20141001
  Transmission Date: 20150528
  Serious: No
  Sender: FDA-Public Use
  Company Number: None

PATIENT
  Age: 48 Year
  Sex: Male

DRUGS (1)
  1. TERBINAFINE [Suspect]
     Active Substance: TERBINAFINE
     Indication: TINEA PEDIS
     Dates: start: 20130720, end: 20130825

REACTIONS (3)
  - Hepatotoxicity [None]
  - Cholestasis [None]
  - Drug-induced liver injury [None]

NARRATIVE: CASE EVENT DATE: 20130825
